FAERS Safety Report 8455249 (Version 2)
Quarter: 2012Q4

REPORT INFORMATION
  Report Type: 
  Country: US (occurrence: US)
  Receive Date: 20120313
  Receipt Date: 20121017
  Transmission Date: 20130627
  Serious: Yes (Other)
  Sender: FDA-Public Use
  Company Number: US-US-EMD SERONO, INC.-7117369

PATIENT
  Age: 30 None
  Sex: Female

DRUGS (3)
  1. REBIF [Suspect]
     Indication: MULTIPLE SCLEROSIS
     Route: 058
     Dates: start: 20090317
  2. MOTRIN [Concomitant]
     Indication: PREMEDICATION
  3. MOTRIN [Concomitant]
     Indication: HEADACHE

REACTIONS (4)
  - Cholelithiasis [Unknown]
  - Pollakiuria [Unknown]
  - Injection site nodule [Recovered/Resolved]
  - Fatigue [Unknown]
